FAERS Safety Report 8205217-6 (Version None)
Quarter: 2012Q1

REPORT INFORMATION
  Report Type: 
  Country: None (occurrence: None)
  Receive Date: 20120313
  Receipt Date: 20120301
  Transmission Date: 20120608
  Serious: Yes (Other)
  Sender: FDA-Public Use
  Company Number: DE-SANOFI-AVENTIS-2012SA016220

PATIENT
  Sex: Male

DRUGS (4)
  1. DOCETAXEL [Suspect]
     Dosage: SEQUENCE 4
     Route: 051
     Dates: start: 20070626
  2. DOCETAXEL [Suspect]
     Dosage: SEQUENCE 3
     Route: 051
     Dates: start: 20070116
  3. DOCETAXEL [Suspect]
     Indication: NEOPLASM PROSTATE
     Dosage: SEQUENCE 1
     Route: 051
     Dates: start: 20060214
  4. DOCETAXEL [Suspect]
     Dosage: SEQUENCE 2
     Route: 051
     Dates: start: 20060907

REACTIONS (1)
  - CARDIOTOXICITY [None]
